FAERS Safety Report 8539930-8 (Version None)
Quarter: 2012Q2

REPORT INFORMATION
  Report Type: 
  Country: None (occurrence: None)
  Receive Date: 20120416
  Receipt Date: 20080102
  Transmission Date: 20120825
  Serious: No
  Sender: FDA-Public Use
  Company Number: PHEH2007US15095

PATIENT
  Age: 93 Year
  Sex: Male
  Weight: 77.6 kg

DRUGS (8)
  1. LASIX [Concomitant]
  2. KLOR-CON [Concomitant]
  3. TOPROL-XL [Concomitant]
  4. DIOVAN [Suspect]
     Dosage: ORAL
     Route: 048
     Dates: start: 20060401
  5. PRILOSEC [Concomitant]
  6. ASPIRIN [Concomitant]
  7. B12 ^RECIP^ (CYANOCOBALAMIN-TANNIN COMPLEX) [Concomitant]
  8. SYNTHROID [Concomitant]

REACTIONS (2)
  - PRODUCT TAMPERING [None]
  - MEDICATION RESIDUE [None]
